FAERS Safety Report 23194491 (Version 2)
Quarter: 2024Q1

REPORT INFORMATION
  Report Type: Report from Study
  Country: US (occurrence: US)
  Receive Date: 20231117
  Receipt Date: 20240229
  Transmission Date: 20240409
  Serious: No
  Sender: FDA-Public Use
  Company Number: US-ACADIA PHARMACEUTICALS INC.-ACA-2023-PIM-004896

PATIENT
  Age: 83 Year
  Sex: Female

DRUGS (3)
  1. NUPLAZID [Suspect]
     Active Substance: PIMAVANSERIN TARTRATE
     Indication: Parkinson^s disease psychosis
     Dosage: 34 MILLIGRAM, QD
     Route: 048
  2. NUPLAZID [Suspect]
     Active Substance: PIMAVANSERIN TARTRATE
     Indication: Dementia Alzheimer^s type
  3. NUPLAZID [Suspect]
     Active Substance: PIMAVANSERIN TARTRATE
     Indication: Parkinson^s disease

REACTIONS (10)
  - Product dose omission issue [Recovered/Resolved]
  - Asthenia [Recovering/Resolving]
  - Catatonia [Recovering/Resolving]
  - Tremor [Recovering/Resolving]
  - Hypokinesia [Recovering/Resolving]
  - Hypervigilance [Recovering/Resolving]
  - Hyporesponsive to stimuli [Recovering/Resolving]
  - Gout [Not Recovered/Not Resolved]
  - Confusional state [Recovering/Resolving]
  - Somnolence [Unknown]

NARRATIVE: CASE EVENT DATE: 20240202
